FAERS Safety Report 13289165 (Version 3)
Quarter: 2017Q2

REPORT INFORMATION
  Report Type: Spontaneous
  Country: US (occurrence: US)
  Receive Date: 20170302
  Receipt Date: 20170524
  Transmission Date: 20170830
  Serious: Yes (Hospitalization)
  Sender: FDA-Public Use
  Company Number: US-TAIHO ONCOLOGY INC-EU-2017-00338

PATIENT
  Age: 58 Year
  Sex: Male

DRUGS (9)
  1. LONSURF [Suspect]
     Active Substance: TIPIRACIL HYDROCHLORIDE\TRIFLURIDINE
     Indication: COLORECTAL CANCER METASTATIC
     Route: 048
     Dates: start: 20170213, end: 201702
  2. FENTANYL. [Concomitant]
     Active Substance: FENTANYL
     Route: 062
  3. MAGNESIUM OXIDE. [Concomitant]
     Active Substance: MAGNESIUM OXIDE
     Dosage: NI
  4. ACETYLSALICYLIC ACID [Concomitant]
     Active Substance: ASPIRIN
     Dosage: NI
  5. PROTONIX [Concomitant]
     Active Substance: PANTOPRAZOLE SODIUM
     Dosage: NI
  6. KEPPRA [Concomitant]
     Active Substance: LEVETIRACETAM
     Dosage: NI
  7. MORPHINE SULFATE. [Concomitant]
     Active Substance: MORPHINE SULFATE
     Route: 048
  8. DEXAMETHASONE. [Concomitant]
     Active Substance: DEXAMETHASONE
     Dosage: NI
  9. IRON [Concomitant]
     Active Substance: IRON
     Dosage: NI

REACTIONS (5)
  - Pulmonary embolism [Unknown]
  - Fall [Unknown]
  - Cellulitis [Unknown]
  - Abdominal wall mass [Unknown]
  - Disease progression [Unknown]

NARRATIVE: CASE EVENT DATE: 20170216
